FAERS Safety Report 16872879 (Version 7)
Quarter: 2021Q3

REPORT INFORMATION
  Report Type: Spontaneous
  Country: IN (occurrence: IN)
  Receive Date: 20191001
  Receipt Date: 20210921
  Transmission Date: 20211014
  Serious: Yes (Death, Other)
  Sender: FDA-Public Use
  Company Number: IN-PFIZER INC-2019313927

PATIENT
  Age: 72 Year
  Sex: Male

DRUGS (1)
  1. CRIZALK [Suspect]
     Active Substance: CRIZOTINIB
     Indication: NON-SMALL CELL LUNG CANCER
     Dosage: 250 MG, 2X/DAY
     Route: 048
     Dates: start: 20180611

REACTIONS (11)
  - Death [Fatal]
  - Full blood count abnormal [Unknown]
  - Decreased appetite [Unknown]
  - Blood potassium increased [Unknown]
  - Fatigue [Unknown]
  - Blood sodium decreased [Unknown]
  - Weight decreased [Unknown]
  - Blood creatine increased [Unknown]
  - Heart rate decreased [Unknown]
  - Blood albumin decreased [Unknown]
  - Cough [Unknown]
